FAERS Safety Report 10774897 (Version 1)
Quarter: 2015Q1

REPORT INFORMATION
  Report Type: Spontaneous
  Country: US (occurrence: None)
  Receive Date: 20150206
  Receipt Date: 20150206
  Transmission Date: 20150721
  Serious: Yes (Hospitalization)
  Sender: FDA-Public Use
  Company Number: HYP201409-000064

PATIENT
  Age: 7 Year
  Sex: Female
  Weight: 17.3 kg

DRUGS (2)
  1. ARGININE (ARGININE) [Concomitant]
  2. RAVICTI [Suspect]
     Active Substance: GLYCEROL PHENYLBUTYRATE
     Indication: UREA CYCLE ENZYME DEFICIENCY
     Dates: start: 201306, end: 201409

REACTIONS (8)
  - Dyskinesia [None]
  - Vomiting [None]
  - Crying [None]
  - Mental status changes [None]
  - Tachycardia [None]
  - Irritability [None]
  - Hyperammonaemic crisis [None]
  - Somnolence [None]

NARRATIVE: CASE EVENT DATE: 20140907
